FAERS Safety Report 9775372 (Version 1)
Quarter: 2013Q4

REPORT INFORMATION
  Report Type: Spontaneous
  Country: GB (occurrence: GB)
  Receive Date: 20131220
  Receipt Date: 20131220
  Transmission Date: 20140711
  Serious: Yes (Life-Threatening, Other)
  Sender: FDA-Public Use
  Company Number: GB-TEVA-450580ISR

PATIENT
  Age: 53 Year
  Sex: Male
  Weight: 62 kg

DRUGS (7)
  1. METOCLOPRAMIDE [Suspect]
     Indication: VOMITING
     Route: 048
  2. ALCOHOL [Concomitant]
  3. NICOTINE [Concomitant]
  4. GRAPEFRUIT [Concomitant]
  5. ORANGE JUICE [Concomitant]
  6. MILK [Concomitant]
  7. CAFFEINE [Concomitant]

REACTIONS (2)
  - Clonic convulsion [Unknown]
  - Road traffic accident [Unknown]
